FAERS Safety Report 6854090-7 (Version None)
Quarter: 2010Q3

REPORT INFORMATION
  Report Type: 
  Country: None (occurrence: None)
  Receive Date: 20100717
  Receipt Date: 20080104
  Transmission Date: 20110219
  Serious: No
  Sender: FDA-Public Use
  Company Number: US-PFIZER INC-2008000252

PATIENT
  Sex: Male
  Weight: 77.3 kg

DRUGS (2)
  1. CHANTIX [Suspect]
     Indication: SMOKING CESSATION THERAPY
     Dates: start: 20060101
  2. BENADRYL [Concomitant]
     Indication: SLEEP DISORDER

REACTIONS (4)
  - ABNORMAL DREAMS [None]
  - DYSGEUSIA [None]
  - ORAL PAIN [None]
  - STOMATITIS [None]
